FAERS Safety Report 4993355-0 (Version None)
Quarter: 2006Q2

REPORT INFORMATION
  Report Type: 
  Country: None (occurrence: None)
  Receive Date: 20060505
  Receipt Date: 20060426
  Transmission Date: 20061013
  Serious: Yes (Death, Life-Threatening)
  Sender: FDA-Public Use
  Company Number: FR-JNJFOC-20060405953

PATIENT
  Age: 78 Year
  Sex: Female
  Weight: 52 kg

DRUGS (4)
  1. REMICADE [Suspect]
     Dosage: SECOND INFUSION
     Route: 042
  2. REMICADE [Suspect]
     Indication: CROHN'S DISEASE
     Dosage: FIRST INFUSION
     Route: 042
  3. CORTANCYL [Suspect]
     Indication: DRUG USE FOR UNKNOWN INDICATION
     Route: 048
  4. IMUREL [Suspect]
     Indication: DRUG USE FOR UNKNOWN INDICATION
     Route: 048

REACTIONS (16)
  - ABDOMINAL PAIN [None]
  - ABSCESS INTESTINAL [None]
  - ACUTE RESPIRATORY DISTRESS SYNDROME [None]
  - ATRIAL FIBRILLATION [None]
  - CEREBROVASCULAR ACCIDENT [None]
  - DEATH [None]
  - DIARRHOEA [None]
  - HAEMODYNAMIC INSTABILITY [None]
  - HYPOTENSION [None]
  - HYPOTHERMIA [None]
  - INFECTION [None]
  - ISCHAEMIC STROKE [None]
  - LARGE INTESTINE PERFORATION [None]
  - PYREXIA [None]
  - SHOCK [None]
  - VOMITING [None]
